FAERS Safety Report 4369447-6 (Version None)
Quarter: 2004Q2

REPORT INFORMATION
  Report Type: 
  Country: None (occurrence: None)
  Receive Date: 20040527
  Receipt Date: 20040506
  Transmission Date: 20050107
  Serious: Yes (Other)
  Sender: FDA-Public Use
  Company Number: USA040566850

PATIENT
  Age: 35 Year
  Sex: Male

DRUGS (2)
  1. CIALIS [Suspect]
  2. HYPERTENSION MEDICATION [Concomitant]

REACTIONS (1)
  - ANAPHYLACTIC SHOCK [None]
